FAERS Safety Report 19665025 (Version 3)
Quarter: 2024Q1

REPORT INFORMATION
  Report Type: Report from Study
  Country: US (occurrence: US)
  Receive Date: 20210806
  Receipt Date: 20240102
  Transmission Date: 20240410
  Serious: Yes (Hospitalization, Other)
  Sender: FDA-Public Use
  Company Number: US-ACADIA PHARMACEUTICALS INC.-ACA-2021-PIM-002602

PATIENT
  Age: 79 Year
  Sex: Male

DRUGS (26)
  1. NUPLAZID [Suspect]
     Active Substance: PIMAVANSERIN TARTRATE
     Indication: Parkinson^s disease psychosis
     Dosage: 10 MILLIGRAM, QD
     Route: 048
     Dates: start: 20210604
  2. NUPLAZID [Suspect]
     Active Substance: PIMAVANSERIN TARTRATE
     Indication: Hallucination
  3. NUPLAZID [Suspect]
     Active Substance: PIMAVANSERIN TARTRATE
     Indication: Delusion
  4. NUPLAZID [Suspect]
     Active Substance: PIMAVANSERIN TARTRATE
     Indication: Parkinson^s disease
     Dosage: 34 MILLIGRAM, QD
     Route: 048
     Dates: start: 20220713
  5. AMLODIPINE [Concomitant]
     Active Substance: AMLODIPINE BESYLATE
  6. ASPIRIN [Concomitant]
     Active Substance: ASPIRIN
  7. DONEPEZIL [Concomitant]
     Active Substance: DONEPEZIL
  8. EZETIMIBE [Concomitant]
     Active Substance: EZETIMIBE
  9. FISH OIL [Concomitant]
     Active Substance: FISH OIL
  10. GABAPENTIN [Concomitant]
     Active Substance: GABAPENTIN
  11. HYDROCHLOROTHIAZIDE [Concomitant]
     Active Substance: HYDROCHLOROTHIAZIDE
  12. IMDUR [Concomitant]
     Active Substance: ISOSORBIDE MONONITRATE
  13. METOPROLOL [Concomitant]
     Active Substance: METOPROLOL
  14. ISOSORBIDE MONONITRATE [Concomitant]
     Active Substance: ISOSORBIDE MONONITRATE
  15. LOSARTAN POTASSIUM [Concomitant]
     Active Substance: LOSARTAN POTASSIUM
  16. NOURIANZ [Concomitant]
     Active Substance: ISTRADEFYLLINE
  17. PANTOPRAZOLE [Concomitant]
     Active Substance: PANTOPRAZOLE
  18. PRALUENT [Concomitant]
     Active Substance: ALIROCUMAB
  19. RANEXA [Concomitant]
     Active Substance: RANOLAZINE
  20. RANOLAZINE [Concomitant]
     Active Substance: RANOLAZINE
  21. RYTARY [Concomitant]
     Active Substance: CARBIDOPA\LEVODOPA
  22. TAMSULOSIN [Concomitant]
     Active Substance: TAMSULOSIN
  23. VITAMIN C [Concomitant]
     Active Substance: ASCORBIC ACID
  24. CHOLECALCIFEROL [Concomitant]
     Active Substance: CHOLECALCIFEROL
  25. VITAMIN D3 [Concomitant]
     Active Substance: CHOLECALCIFEROL
  26. WARFARIN [Concomitant]
     Active Substance: WARFARIN

REACTIONS (8)
  - Pneumonia aspiration [Recovered/Resolved]
  - Cardiac failure congestive [Recovered/Resolved]
  - Cough [Recovered/Resolved]
  - Underdose [Not Recovered/Not Resolved]
  - General physical health deterioration [Not Recovered/Not Resolved]
  - Therapeutic product effect incomplete [Not Recovered/Not Resolved]
  - Hallucination [Not Recovered/Not Resolved]
  - Hallucination [Not Recovered/Not Resolved]

NARRATIVE: CASE EVENT DATE: 20210727
